FAERS Safety Report 10330238 (Version 3)
Quarter: 2014Q4

REPORT INFORMATION
  Report Type: Spontaneous
  Country: JP (occurrence: JP)
  Receive Date: 20140721
  Receipt Date: 20141109
  Transmission Date: 20150528
  Serious: Yes (Other)
  Sender: FDA-Public Use
  Company Number: JP-009507513-1407JPN006225

PATIENT
  Age: 65 Year
  Sex: Female
  Weight: 57 kg

DRUGS (6)
  1. REBETOL [Suspect]
     Active Substance: RIBAVIRIN
     Dosage: 100 MG, QD
     Route: 048
     Dates: start: 20140304, end: 20140602
  2. REBETOL [Suspect]
     Active Substance: RIBAVIRIN
     Indication: CHRONIC HEPATITIS C
     Dosage: 200 MG, QD
     Route: 048
     Dates: start: 20140304, end: 20140602
  3. FEBURIC [Suspect]
     Active Substance: FEBUXOSTAT
     Indication: HYPERURICAEMIA
     Dosage: 20 MG, QD
     Route: 048
     Dates: start: 20140307, end: 20140624
  4. PEGINTRON [Suspect]
     Active Substance: PEGINTERFERON ALFA-2B
     Indication: CHRONIC HEPATITIS C
     Dosage: 100 MICROGRAM, 1 IN 1 WEEK
     Route: 058
     Dates: start: 20140304, end: 20140617
  5. REBETOL [Suspect]
     Active Substance: RIBAVIRIN
     Dosage: 100 MG, QD
     Route: 048
     Dates: start: 20140603, end: 20140617
  6. SIMEPREVIR [Suspect]
     Active Substance: SIMEPREVIR
     Indication: CHRONIC HEPATITIS C
     Dosage: 100 MG, 1 IN 1 DAY
     Route: 048
     Dates: start: 20140304, end: 20140526

REACTIONS (6)
  - White blood cell count decreased [Recovered/Resolved]
  - Depressive symptom [Recovered/Resolved]
  - Hyperuricaemia [Recovered/Resolved]
  - Platelet count decreased [Recovered/Resolved]
  - Pruritus [Unknown]
  - Generalised erythema [Recovering/Resolving]

NARRATIVE: CASE EVENT DATE: 20140307
